FAERS Safety Report 21192875 (Version 1)
Quarter: 2022Q3

REPORT INFORMATION
  Report Type: Spontaneous
  Country: CA (occurrence: CA)
  Receive Date: 20220810
  Receipt Date: 20220810
  Transmission Date: 20221026
  Serious: Yes (Other)
  Sender: FDA-Public Use
  Company Number: CA-BAXTER-2022BAX017004

PATIENT
  Age: 63 Year
  Sex: Male

DRUGS (9)
  1. DOXORUBICIN [Suspect]
     Active Substance: DOXORUBICIN
     Indication: Diffuse large B-cell lymphoma
     Dosage: ROUTE- INTRAVENOUS(NOT OTHERWISE SPECIFIED)
     Route: 042
  2. DOXORUBICIN [Suspect]
     Active Substance: DOXORUBICIN
     Dosage: DOSAGE FORM: NOT SPECIFIED, ROUTE- INTRAVENOUS(NOT OTHERWISE SPECIFIED)
     Route: 042
  3. CYCLOPHOSPHAMIDE [Suspect]
     Active Substance: CYCLOPHOSPHAMIDE
     Indication: Diffuse large B-cell lymphoma
     Dosage: DOSAGE FORM-NOT SPECIFIED, ROUTE- INTRAVENOUS (NOT OTHERWISE SPECIFIED)
     Route: 042
  4. CYCLOPHOSPHAMIDE [Suspect]
     Active Substance: CYCLOPHOSPHAMIDE
     Dosage: DOSAGE FORM-NOT SPECIFIED
     Route: 065
  5. METHOTREXATE [Suspect]
     Active Substance: METHOTREXATE
     Indication: Diffuse large B-cell lymphoma
     Dosage: DOSAGE FORM- NOT SPECIFIED, ROUTE- INTRAVENOUS(NOT OTHERWISE SPECIFIED)
     Route: 042
  6. PREDNISONE [Suspect]
     Active Substance: PREDNISONE
     Indication: Diffuse large B-cell lymphoma
     Dosage: DOSAGE FORM- NOT SPECIFIED, ROUTE- INTRAVENOUS(NOT OTHERWISE SPECIFIED)
     Route: 042
  7. RITUXIMAB [Suspect]
     Active Substance: RITUXIMAB
     Indication: Diffuse large B-cell lymphoma
     Dosage: ROUTE- INTRAVENOUS(NOT OTHERWISE SPECIFIED)
     Route: 042
  8. VINCRISTINE [Suspect]
     Active Substance: VINCRISTINE
     Indication: Diffuse large B-cell lymphoma
     Dosage: ROUTE- INTRAVENOUS(NOT OTHERWISE SPECIFIED)
     Route: 042
  9. VINCRISTINE [Suspect]
     Active Substance: VINCRISTINE
     Dosage: UNK
     Route: 065

REACTIONS (3)
  - Concomitant disease aggravated [Unknown]
  - Hepatitis [Unknown]
  - Hepatitis C [Unknown]
